FAERS Safety Report 4809913-X (Version None)
Quarter: 2005Q4

REPORT INFORMATION
  Report Type: 
  Country: None (occurrence: None)
  Receive Date: 20051024
  Receipt Date: 20051024
  Transmission Date: 20060501
  Serious: Yes (Death)
  Sender: FDA-Public Use
  Company Number: None

PATIENT
  Age: 57 Year
  Sex: Male
  Weight: 81.6475 kg

DRUGS (5)
  1. PACLITAXEL [Suspect]
     Indication: OESOPHAGEAL CARCINOMA
     Dosage: 249 MG   ONE TIME   IV DRIP
     Route: 041
     Dates: start: 20051013, end: 20051013
  2. ANZEMET [Concomitant]
  3. DEXAMETHASONE [Concomitant]
  4. DIPHENHYDRAMINE HCL [Concomitant]
  5. FAMOTIDINE [Concomitant]

REACTIONS (11)
  - ARTERIAL RUPTURE [None]
  - CARDIO-RESPIRATORY ARREST [None]
  - CATHETER SITE HAEMORRHAGE [None]
  - DISSEMINATED INTRAVASCULAR COAGULATION [None]
  - HYPOTENSION [None]
  - IATROGENIC INJURY [None]
  - INFUSION RELATED REACTION [None]
  - PNEUMOTHORAX [None]
  - RENAL IMPAIRMENT [None]
  - RESPIRATORY DISTRESS [None]
  - WOUND SECRETION [None]
